FAERS Safety Report 22539873 (Version 2)
Quarter: 2023Q2

REPORT INFORMATION
  Report Type: Spontaneous
  Country: US (occurrence: US)
  Receive Date: 20230609
  Receipt Date: 20230621
  Transmission Date: 20230722
  Serious: Yes (Hospitalization, Other)
  Sender: FDA-Public Use
  Company Number: US-AMNEAL PHARMACEUTICALS-2023-AMRX-01948

PATIENT
  Sex: Male
  Weight: 7.619 kg

DRUGS (3)
  1. VIGABATRIN [Suspect]
     Active Substance: VIGABATRIN
     Indication: Illness
     Dosage: 250 MG IN AM AND 500 MG IN EVENING G-TUBE DAILY
     Route: 065
     Dates: start: 20230427
  2. VIGABATRIN [Suspect]
     Active Substance: VIGABATRIN
     Indication: Seizure
  3. KEPPRA [Concomitant]
     Active Substance: LEVETIRACETAM
     Indication: Product used for unknown indication
     Dosage: 100 MG/ML
     Route: 065

REACTIONS (1)
  - Hydrocephalus [Unknown]
